FAERS Safety Report 14109836 (Version 1)
Quarter: 2017Q4

REPORT INFORMATION
  Report Type: Spontaneous
  Country: US (occurrence: US)
  Receive Date: 20171020
  Receipt Date: 20171020
  Transmission Date: 20180321
  Serious: No
  Sender: FDA-Public Use
  Company Number: US-TEVA-793432ACC

PATIENT
  Age: 70 Year
  Sex: Female

DRUGS (1)
  1. ESTRADIOL-TEVA [Suspect]
     Active Substance: ESTRADIOL
     Indication: PRODUCT USED FOR UNKNOWN INDICATION
     Route: 065

REACTIONS (2)
  - Product substitution issue [Unknown]
  - Heart rate decreased [Recovered/Resolved]
